FAERS Safety Report 23684100 (Version 1)
Quarter: 2024Q1

REPORT INFORMATION
  Report Type: Spontaneous
  Country: EG (occurrence: EG)
  Receive Date: 20240328
  Receipt Date: 20240328
  Transmission Date: 20240410
  Serious: Yes (Other)
  Sender: FDA-Public Use
  Company Number: EG-PFIZER INC-PV202400040553

PATIENT

DRUGS (1)
  1. VIBRAMYCIN [Suspect]
     Active Substance: DOXYCYCLINE
     Dosage: UNK

REACTIONS (4)
  - Angina pectoris [Unknown]
  - Nausea [Unknown]
  - Dyspnoea [Unknown]
  - Headache [Unknown]
